FAERS Safety Report 7973404-8 (Version None)
Quarter: 2011Q4

REPORT INFORMATION
  Report Type: 
  Country: None (occurrence: None)
  Receive Date: 20111213
  Receipt Date: 20111010
  Transmission Date: 20120403
  Serious: No
  Sender: FDA-Public Use
  Company Number: US-AMGEN-USASP2011052241

PATIENT
  Sex: Female

DRUGS (7)
  1. IBUPROFEN [Concomitant]
     Dosage: UNK
  2. THYROID TAB [Concomitant]
     Dosage: 75 MUG, UNK
  3. 5-HTP                              /00439301/ [Concomitant]
     Dosage: UNK
  4. ARANESP [Suspect]
     Indication: MYELOFIBROSIS
     Dosage: 300 MUG, QWK
     Dates: start: 20100601
  5. RITALIN [Concomitant]
     Dosage: UNK
  6. TYLENOL (CAPLET) [Concomitant]
     Indication: TRANSFUSION
     Dosage: UNK
  7. BENADRYL [Concomitant]
     Indication: TRANSFUSION
     Dosage: UNK

REACTIONS (9)
  - FATIGUE [None]
  - INJECTION SITE PAIN [None]
  - DRUG INEFFECTIVE [None]
  - DISTURBANCE IN ATTENTION [None]
  - INJECTION SITE HAEMATOMA [None]
  - COUGH [None]
  - LETHARGY [None]
  - PLATELET COUNT DECREASED [None]
  - HAEMOGLOBIN DECREASED [None]
